FAERS Safety Report 5309458-7 (Version None)
Quarter: 2007Q2

REPORT INFORMATION
  Report Type: 
  Country: None (occurrence: None)
  Receive Date: 20070427
  Receipt Date: 20070124
  Transmission Date: 20071010
  Serious: Yes (Other)
  Sender: FDA-Public Use
  Company Number: US-BAYER-200614789BCC

PATIENT
  Age: 61 Year
  Sex: Female
  Weight: 87 kg

DRUGS (2)
  1. ALEVE [Suspect]
     Indication: PAIN
     Dosage: TOTAL DAILY DOSE: 440 MG  UNIT DOSE: 220 MG
     Route: 048
     Dates: start: 20061128
  2. DIABETES MEDICATIONS [Concomitant]

REACTIONS (3)
  - EYE ROLLING [None]
  - RESPIRATORY ARREST [None]
  - SYNCOPE [None]
